FAERS Safety Report 7977940-X (Version None)
Quarter: 2011Q4

REPORT INFORMATION
  Report Type: 
  Country: None (occurrence: None)
  Receive Date: 20111214
  Receipt Date: 20111206
  Transmission Date: 20120403
  Serious: Yes (Hospitalization)
  Sender: FDA-Public Use
  Company Number: US-BIOGENIDEC-2011BI046300

PATIENT
  Age: 63 Year
  Sex: Male

DRUGS (2)
  1. AVONEX [Suspect]
     Indication: MULTIPLE SCLEROSIS
     Route: 030
     Dates: start: 19970221
  2. AVONEX [Suspect]
     Route: 030
     Dates: start: 20020221

REACTIONS (4)
  - DYSPNOEA [None]
  - ROAD TRAFFIC ACCIDENT [None]
  - ASTHENIA [None]
  - CERVICAL VERTEBRAL FRACTURE [None]
